FAERS Safety Report 9686444 (Version 2)
Quarter: 2014Q1

REPORT INFORMATION
  Report Type: Spontaneous
  Country: IT (occurrence: None)
  Receive Date: 20131108
  Receipt Date: 20140311
  Transmission Date: 20141002
  Serious: Yes (Hospitalization, Other)
  Sender: FDA-Public Use
  Company Number: ADR-2013-02037

PATIENT
  Sex: 0

DRUGS (1)
  1. LIORESAL [Suspect]

REACTIONS (6)
  - Overdose [None]
  - Dyspnoea [None]
  - Mental impairment [None]
  - Convulsion [None]
  - Device connection issue [None]
  - Device physical property issue [None]
